FAERS Safety Report 7583725-9 (Version None)
Quarter: 2011Q2

REPORT INFORMATION
  Report Type: 
  Country: None (occurrence: None)
  Receive Date: 20110630
  Receipt Date: 20110623
  Transmission Date: 20111010
  Serious: Yes (Hospitalization)
  Sender: FDA-Public Use
  Company Number: B0729601A

PATIENT
  Sex: Female

DRUGS (5)
  1. LUVION [Suspect]
     Route: 048
     Dates: start: 20050101, end: 20100215
  2. RAMIPRIL [Suspect]
     Indication: HYPERTENSION
     Dosage: 5MG PER DAY
     Route: 048
     Dates: start: 19950101, end: 20100215
  3. LANOXIN [Suspect]
     Dosage: .125MG PER DAY
     Route: 048
     Dates: start: 20000101, end: 20100215
  4. LASIX [Concomitant]
     Dosage: 25MG PER DAY
     Route: 048
  5. CLONIDINE HCL [Concomitant]
     Route: 062

REACTIONS (4)
  - TOXICITY TO VARIOUS AGENTS [None]
  - BRADYARRHYTHMIA [None]
  - HYPERKALAEMIA [None]
  - HYPONATRAEMIA [None]
